FAERS Safety Report 10097698 (Version 1)
Quarter: 2014Q2

REPORT INFORMATION
  Report Type: Spontaneous
  Country: US (occurrence: US)
  Receive Date: 20140423
  Receipt Date: 20140423
  Transmission Date: 20141212
  Serious: No
  Sender: FDA-Public Use
  Company Number: US-BIOGENIDEC-2014BI034520

PATIENT
  Age: 57 Year
  Sex: Female

DRUGS (14)
  1. TECFIDERA [Suspect]
     Indication: MULTIPLE SCLEROSIS
     Route: 048
     Dates: start: 20130918
  2. ADVAIR DISKUS [Concomitant]
  3. FLONASE [Concomitant]
  4. KLONOPIN [Concomitant]
  5. LOSARTAN POTASSIUM [Concomitant]
  6. NAPROSYN [Concomitant]
  7. PAMELOR [Concomitant]
  8. PROVENTIL HFA [Concomitant]
  9. REQUIP [Concomitant]
  10. SINGULAIR [Concomitant]
  11. SYNTHROID [Concomitant]
  12. WARFARIN SODIUM [Concomitant]
  13. ZANAFLEX [Concomitant]
  14. ZOFRAN [Concomitant]

REACTIONS (1)
  - Feeling cold [Unknown]
